FAERS Safety Report 5471769-2 (Version None)
Quarter: 2007Q3

REPORT INFORMATION
  Report Type: 
  Country: None (occurrence: None)
  Receive Date: 20070928
  Receipt Date: 20070515
  Transmission Date: 20080115
  Serious: No
  Sender: FDA-Public Use
  Company Number: US-BRISTOL-MYERS SQUIBB COMPANY-13780861

PATIENT
  Age: 60 Year
  Sex: Female
  Weight: 104 kg

DRUGS (7)
  1. DEFINITY [Suspect]
     Indication: ECHOCARDIOGRAM
     Route: 042
     Dates: start: 20070514, end: 20070514
  2. ASPIRIN [Concomitant]
  3. ATENOLOL [Concomitant]
  4. METFORMIN [Concomitant]
  5. PLAVIX [Concomitant]
  6. PREVACID [Concomitant]
  7. VYTORIN [Concomitant]

REACTIONS (2)
  - CHROMATURIA [None]
  - URINE ODOUR ABNORMAL [None]
